FAERS Safety Report 12679692 (Version 1)
Quarter: 2016Q3

REPORT INFORMATION
  Report Type: Spontaneous
  Country: US (occurrence: US)
  Receive Date: 20160824
  Receipt Date: 20160824
  Transmission Date: 20161109
  Serious: No
  Sender: FDA-Public Use
  Company Number: US-AMGEN-USASP2016108707

PATIENT
  Age: 77 Year
  Sex: Female

DRUGS (2)
  1. ENBREL [Suspect]
     Active Substance: ETANERCEPT
     Indication: RHEUMATOID ARTHRITIS
     Dosage: 25 MG, 2 TIMES/WK
     Route: 065
     Dates: start: 2000
  2. CELEBREX [Concomitant]
     Active Substance: CELECOXIB
     Dosage: UNK
     Dates: end: 2016

REACTIONS (5)
  - Laboratory test abnormal [Unknown]
  - Pain [Unknown]
  - Musculoskeletal stiffness [Unknown]
  - Renal function test abnormal [Unknown]
  - Polydipsia [Unknown]

NARRATIVE: CASE EVENT DATE: 2016
